FAERS Safety Report 8800135 (Version 1)
Quarter: 2012Q4

REPORT INFORMATION
  Report Type: 
  Country: CA (occurrence: CA)
  Receive Date: 20120921
  Receipt Date: 20120921
  Transmission Date: 20130627
  Serious: Yes (Other)
  Sender: FDA-Public Use
  Company Number: PHHY2012CA081670

PATIENT
  Age: 90 Year
  Sex: Female

DRUGS (18)
  1. ACLASTA/ZOLEDRONATE [Suspect]
     Dosage: 5 mg, yearly
     Route: 042
     Dates: start: 201003
  2. NITRODOM [Concomitant]
     Dosage: 0.2 mg, UNK
  3. LASIX [Concomitant]
     Dosage: 20 mg, UNK
  4. ATACAND [Concomitant]
     Dosage: UNK UKN, daily
  5. ASA [Concomitant]
     Dosage: 80 mg, daily
  6. CAMMADIN [Concomitant]
     Dosage: 5 mg, UNK
  7. SPIRIVA [Concomitant]
     Dosage: 18 mg, UNK
  8. ADVAIN DINKUS [Concomitant]
     Dosage: UNK UKN, UNK
  9. CALCIUM W/VITAMIN D NOS [Concomitant]
     Dosage: 1 DF (500mg calcium/125 ug Vit D), BID
  10. OXAZEPAM [Concomitant]
     Dosage: 15 mg, PRN
  11. ACETAMINOPHEN [Concomitant]
     Dosage: 500 mg, PRN
  12. NEXIUM [Concomitant]
     Dosage: 0.5 DF, BID
  13. SENOKOT [Concomitant]
     Dosage: UNK UKN, PRN
  14. COLACE [Concomitant]
     Dosage: UNK UKN, UNK
  15. FERROUS SULPHATE [Concomitant]
     Dosage: 300 mg, BID
  16. CODEINE [Concomitant]
     Dosage: UNK UKN, UNK
  17. NORFLEX [Concomitant]
     Dosage: UNK UKN, BID
  18. VENTOLIN [Concomitant]
     Dosage: UNK UKN, UNK

REACTIONS (4)
  - Pneumonia [Recovered/Resolved]
  - Rib fracture [Recovered/Resolved]
  - Fall [Recovered/Resolved]
  - Pain [Unknown]
